FAERS Safety Report 23133271 (Version 1)
Quarter: 2023Q4

REPORT INFORMATION
  Report Type: Spontaneous
  Country: JP (occurrence: JP)
  Receive Date: 20231101
  Receipt Date: 20231101
  Transmission Date: 20240110
  Serious: Yes (Other)
  Sender: FDA-Public Use
  Company Number: JP-GSKNCCC-Case-01842603_AE-76741

PATIENT

DRUGS (2)
  1. TRELEGY ELLIPTA [Suspect]
     Active Substance: FLUTICASONE FUROATE\UMECLIDINIUM BROMIDE\VILANTEROL TRIFENATATE
     Indication: Asthma
     Dosage: UNK
  2. FLUTICASONE FUROATE\VILANTEROL TRIFENATATE [Suspect]
     Active Substance: FLUTICASONE FUROATE\VILANTEROL TRIFENATATE
     Indication: Asthma
     Dosage: UNK

REACTIONS (11)
  - Urinary retention [Unknown]
  - Abdominal distension [Unknown]
  - Abdominal pain upper [Unknown]
  - Eating disorder [Unknown]
  - Constipation [Unknown]
  - Dyschezia [Unknown]
  - Dysuria [Unknown]
  - Pollakiuria [Unknown]
  - Oliguria [Unknown]
  - Malaise [Unknown]
  - Product communication issue [Unknown]
